FAERS Safety Report 5733530-0 (Version None)
Quarter: 2008Q2

REPORT INFORMATION
  Report Type: 
  Country: None (occurrence: None)
  Receive Date: 20080509
  Receipt Date: 20080505
  Transmission Date: 20081010
  Serious: Yes (Other)
  Sender: FDA-Public Use
  Company Number: AU-AVENTIS-200814124GDDC

PATIENT
  Age: 63 Year
  Sex: Female

DRUGS (3)
  1. LANTUS [Suspect]
     Route: 058
     Dates: start: 20070507
  2. AUTOPEN INSULIN INJECTION PEN [Suspect]
     Route: 058
  3. LEVOTHYROXINE SODIUM [Concomitant]

REACTIONS (3)
  - HYPOGLYCAEMIA [None]
  - THYROID CANCER [None]
  - WEIGHT INCREASED [None]
